FAERS Safety Report 9694574 (Version 4)
Quarter: 2014Q3

REPORT INFORMATION
  Report Type: Report from Study
  Country: BR (occurrence: BR)
  Receive Date: 20131118
  Receipt Date: 20140808
  Transmission Date: 20150326
  Serious: Yes (Hospitalization, Other)
  Sender: FDA-Public Use
  Company Number: BR-ROCHE-1228332

PATIENT
  Sex: Female
  Weight: 84 kg

DRUGS (7)
  1. ARAVA [Concomitant]
     Active Substance: LEFLUNOMIDE
  2. ENBREL [Concomitant]
     Active Substance: ETANERCEPT
  3. SIMVASTATIN. [Concomitant]
     Active Substance: SIMVASTATIN
     Route: 065
  4. VASLIP (BRAZIL) [Concomitant]
  5. ACTEMRA [Suspect]
     Active Substance: TOCILIZUMAB
     Indication: RHEUMATOID ARTHRITIS
     Dosage: DATE OF MOST RECENT DOSE OF  TOCILIZUMAB: 28/OCT/2013.
     Route: 042
     Dates: start: 20111004, end: 20140120
  6. ARADOIS [Concomitant]
     Active Substance: LOSARTAN POTASSIUM
  7. CITALOPRAM [Concomitant]
     Active Substance: CITALOPRAM HYDROBROMIDE

REACTIONS (17)
  - Vomiting [Recovered/Resolved]
  - Skin infection [Recovered/Resolved]
  - Staphylococcal infection [Recovered/Resolved]
  - Furuncle [Not Recovered/Not Resolved]
  - Gastrointestinal candidiasis [Recovered/Resolved]
  - Blood cholesterol abnormal [Recovered/Resolved]
  - Weight increased [Not Recovered/Not Resolved]
  - Varicose vein [Not Recovered/Not Resolved]
  - Subcutaneous abscess [Recovered/Resolved]
  - Breast mass [Recovered/Resolved]
  - Malaise [Recovered/Resolved]
  - Pneumonia [Recovered/Resolved]
  - Diarrhoea [Recovered/Resolved]
  - Immunodeficiency [Not Recovered/Not Resolved]
  - Discomfort [Not Recovered/Not Resolved]
  - Hypersensitivity [Not Recovered/Not Resolved]
  - Infection [Recovered/Resolved]
